FAERS Safety Report 9415676 (Version 1)
Quarter: 2013Q3

REPORT INFORMATION
  Report Type: Spontaneous
  Country: PR (occurrence: PR)
  Receive Date: 20130723
  Receipt Date: 20130723
  Transmission Date: 20140515
  Serious: Yes (Other)
  Sender: FDA-Public Use
  Company Number: PR-WATSON-2013-12568

PATIENT
  Age: 56 Year
  Sex: Female

DRUGS (4)
  1. NITROFURANTOIN (WATSON LABORATORIES) [Suspect]
     Indication: URINARY TRACT INFECTION
     Dosage: 100 MG, BID
     Route: 065
     Dates: start: 201007
  2. PREDNISONE [Concomitant]
     Indication: SYSTEMIC LUPUS ERYTHEMATOSUS
     Dosage: 15 MG, DAILY
     Route: 065
  3. PREDNISONE [Concomitant]
     Dosage: 5 MG,DAILY
     Route: 065
  4. HYDROXYCHLOROQUINE [Concomitant]
     Indication: SYSTEMIC LUPUS ERYTHEMATOSUS
     Dosage: 400 MG, DAILY
     Route: 065

REACTIONS (2)
  - Microangiopathic haemolytic anaemia [Recovered/Resolved]
  - Thrombocytopenia [Recovered/Resolved]
